FAERS Safety Report 24940621 (Version 1)
Quarter: 2025Q1

REPORT INFORMATION
  Report Type: Spontaneous
  Country: IT (occurrence: IT)
  Receive Date: 20250207
  Receipt Date: 20250207
  Transmission Date: 20250408
  Serious: Yes (Other)
  Sender: TEVA
  Company Number: None

PATIENT
  Age: 72 Year
  Sex: Male

DRUGS (5)
  1. DOCETAXEL [Suspect]
     Active Substance: DOCETAXEL
     Indication: Prostate cancer
     Route: 042
     Dates: start: 20240826, end: 20241114
  2. CHOLECALCIFEROL [Concomitant]
     Active Substance: CHOLECALCIFEROL
     Indication: Product used for unknown indication
     Dosage: 25,000 IU/ 2.5 ML, 1 FL 2 TIMES A MONTH (ORAL SOLUTION)
     Route: 048
  3. DECAPEPTYL [Concomitant]
     Indication: Product used for unknown indication
     Dosage: 11.25 MG QUARTERLY (POWDER AND SOLVENT FOR PROLONGED-RELEASE SUSPENSION FOR INJECTION)
     Route: 030
  4. PREDNISONE [Concomitant]
     Active Substance: PREDNISONE
     Indication: Product used for unknown indication
     Dosage: 25 MG 1 TABLET AFTER BREAKFAST AND 1 TABLET AFTER DINNER
     Route: 048
  5. CALCIODIE [Concomitant]
     Indication: Product used for unknown indication
     Dosage: 1000 MG, 1 TABLET/DAY (EFFERVESCENT TABLETS)
     Route: 048

REACTIONS (1)
  - Neutropenia [Recovered/Resolved]

NARRATIVE: CASE EVENT DATE: 20241201
